FAERS Safety Report 25048894 (Version 2)
Quarter: 2025Q2

REPORT INFORMATION
  Report Type: Report from Study
  Country: BR (occurrence: BR)
  Receive Date: 20250307
  Receipt Date: 20250509
  Transmission Date: 20250717
  Serious: Yes (Other)
  Sender: NOVARTIS
  Company Number: BR-002147023-NVSC2025BR037955

PATIENT
  Sex: Female

DRUGS (1)
  1. COSENTYX [Suspect]
     Active Substance: SECUKINUMAB
     Indication: Ankylosing spondylitis
     Route: 065

REACTIONS (9)
  - Genital herpes [Unknown]
  - Fatigue [Recovering/Resolving]
  - Decreased immune responsiveness [Unknown]
  - Discomfort [Unknown]
  - Asthenia [Recovering/Resolving]
  - Pain [Recovered/Resolved]
  - Bradykinesia [Unknown]
  - Feeling abnormal [Unknown]
  - Inappropriate schedule of product administration [Unknown]
